FAERS Safety Report 6409046-5 (Version None)
Quarter: 2009Q4

REPORT INFORMATION
  Report Type: 
  Country: None (occurrence: None)
  Receive Date: 20091019
  Receipt Date: 20091019
  Transmission Date: 20100525
  Serious: No
  Sender: FDA-Public Use
  Company Number: None

PATIENT
  Age: 38 Year
  Sex: Female
  Weight: 36.2878 kg

DRUGS (1)
  1. RISPERDAL CONSTA [Suspect]
     Indication: MAJOR DEPRESSION
     Dosage: 25MG Q2WK IM
     Route: 030
     Dates: start: 20090923

REACTIONS (3)
  - INJECTION SITE INJURY [None]
  - NEEDLE ISSUE [None]
  - SYRINGE ISSUE [None]
